FAERS Safety Report 9647722 (Version 2)
Quarter: 2013Q4

REPORT INFORMATION
  Report Type: Spontaneous
  Country: BR (occurrence: BR)
  Receive Date: 20131028
  Receipt Date: 20131106
  Transmission Date: 20140711
  Serious: Yes (Hospitalization, Other)
  Sender: FDA-Public Use
  Company Number: BR-AMGEN-BRASP2013075764

PATIENT
  Age: 61 Year
  Sex: Female
  Weight: 60 kg

DRUGS (6)
  1. ENBREL [Suspect]
     Indication: RHEUMATOID ARTHRITIS
     Dosage: 50 MG ONCE A WEEK
     Route: 058
     Dates: start: 201208
  2. ENALAPRIL [Concomitant]
     Dosage: 5 MG, UNK
  3. SIMVASTATIN [Concomitant]
     Dosage: 5 MG, UNK
     Route: 055
  4. ATROVENT [Concomitant]
     Dosage: UNSPECIFIED DOSE, AS NEEDED
     Route: 055
  5. BEROTEC [Concomitant]
     Dosage: UNSPECIFIED DOSE, AS NEEDED
     Route: 055
  6. SERUM PHYSIOLOGICAL [Concomitant]
     Dosage: UNSPECIFIED DOSE, AS NEEDED
     Route: 055

REACTIONS (6)
  - Syncope [Recovering/Resolving]
  - Coma [Recovered/Resolved]
  - Cardiac arrest [Recovering/Resolving]
  - Respiratory arrest [Recovering/Resolving]
  - Malaise [Unknown]
  - Bronchitis [Recovering/Resolving]
